FAERS Safety Report 6251756-7 (Version None)
Quarter: 2009Q2

REPORT INFORMATION
  Report Type: 
  Country: None (occurrence: None)
  Receive Date: 20090630
  Receipt Date: 20090619
  Transmission Date: 20091009
  Serious: Yes (Hospitalization, Other)
  Sender: FDA-Public Use
  Company Number: PHHY2008JP10902

PATIENT
  Sex: Female
  Weight: 56 kg

DRUGS (3)
  1. TEGRETOL [Suspect]
     Indication: TRIGEMINAL NEURALGIA
     Dosage: 100 MG, BID
     Route: 048
     Dates: start: 20080508, end: 20080603
  2. CYANOCOBALAMIN [Concomitant]
     Indication: TRIGEMINAL NEURALGIA
     Dosage: 500 UG, TID
     Route: 048
     Dates: start: 20080508, end: 20080521
  3. KLARICID [Concomitant]
     Indication: OSTEOMYELITIS
     Dosage: 200 MG, BID
     Route: 048
     Dates: start: 20080523, end: 20080603

REACTIONS (12)
  - ANOREXIA [None]
  - APHTHOUS STOMATITIS [None]
  - CONJUNCTIVAL HYPERAEMIA [None]
  - DRUG ERUPTION [None]
  - EYE DISORDER [None]
  - EYELID OEDEMA [None]
  - LACRIMATION INCREASED [None]
  - LYMPHOCYTE STIMULATION TEST POSITIVE [None]
  - MALAISE [None]
  - PYREXIA [None]
  - RASH [None]
  - VISION BLURRED [None]
